FAERS Safety Report 9107301 (Version 7)
Quarter: 2013Q2

REPORT INFORMATION
  Report Type: Spontaneous
  Country: US (occurrence: US)
  Receive Date: 20130221
  Receipt Date: 20130423
  Transmission Date: 20140414
  Serious: Yes (Hospitalization, Other)
  Sender: FDA-Public Use
  Company Number: US-JNJFOC-20130208607

PATIENT
  Age: 84 Year
  Sex: Male
  Weight: 61.24 kg

DRUGS (5)
  1. XARELTO [Suspect]
     Indication: CEREBROVASCULAR ACCIDENT PROPHYLAXIS
     Route: 048
     Dates: start: 20120206
  2. XARELTO [Suspect]
     Indication: ATRIAL FIBRILLATION
     Route: 048
     Dates: start: 20120206
  3. NAMENDA [Concomitant]
     Route: 048
     Dates: start: 201106
  4. TOPROL  XL [Concomitant]
     Dosage: 50 UNITS UNSPECIFIED
     Route: 048
     Dates: start: 2008
  5. ARICEPT [Concomitant]
     Route: 048
     Dates: start: 201106

REACTIONS (3)
  - Cerebellar haemorrhage [Recovered/Resolved]
  - Platelet count decreased [Recovering/Resolving]
  - Inappropriate schedule of drug administration [Unknown]
